FAERS Safety Report 14449629 (Version 1)
Quarter: 2018Q1

REPORT INFORMATION
  Report Type: Spontaneous
  Country: US (occurrence: US)
  Receive Date: 20180126
  Receipt Date: 20180126
  Transmission Date: 20180509
  Serious: No
  Sender: FDA-Public Use
  Company Number: None

PATIENT
  Sex: Female
  Weight: 102.06 kg

DRUGS (5)
  1. FOLIC ACID. [Suspect]
     Active Substance: FOLIC ACID
     Indication: ANKYLOSING SPONDYLITIS
  2. FOLIC ACID. [Suspect]
     Active Substance: FOLIC ACID
     Indication: ARTHRALGIA
  3. HUMIRA [Concomitant]
     Active Substance: ADALIMUMAB
  4. OTREXUP [Suspect]
     Active Substance: METHOTREXATE
     Indication: ARTHRALGIA
  5. OTREXUP [Suspect]
     Active Substance: METHOTREXATE
     Indication: ANKYLOSING SPONDYLITIS

REACTIONS (1)
  - Drug ineffective [None]
